FAERS Safety Report 11864978 (Version 1)
Quarter: 2015Q4

REPORT INFORMATION
  Report Type: Other
  Country: DE (occurrence: DE)
  Receive Date: 20151223
  Receipt Date: 20151223
  Transmission Date: 20160305
  Serious: Yes (Other)
  Sender: FDA-Public Use
  Company Number: DE-MEDTRONIC-1045819

PATIENT
  Age: 45 Year
  Sex: Female

DRUGS (1)
  1. BACLOFEN. [Suspect]
     Active Substance: BACLOFEN
     Indication: MUSCLE SPASTICITY
     Route: 037

REACTIONS (4)
  - Paresis cranial nerve [Recovered/Resolved with Sequelae]
  - Headache [Recovered/Resolved with Sequelae]
  - Neck pain [Recovered/Resolved with Sequelae]
  - Diplopia [Recovered/Resolved with Sequelae]
